FAERS Safety Report 13765447 (Version 1)
Quarter: 2017Q3

REPORT INFORMATION
  Report Type: Report from Study
  Country: PT (occurrence: PT)
  Receive Date: 20170718
  Receipt Date: 20170718
  Transmission Date: 20171127
  Serious: Yes (Hospitalization, Other)
  Sender: FDA-Public Use
  Company Number: PT-GILEAD-2017-0282631

PATIENT
  Age: 45 Year
  Sex: Male

DRUGS (2)
  1. EMTRICITABINE/RILPIVIRINE/TENOFOVIR DF [Suspect]
     Active Substance: EMTRICITABINE\RILPIVIRINE\TENOFOVIR DISOPROXIL FUMARATE
     Indication: HIV INFECTION
     Dosage: UNK
     Route: 065
     Dates: start: 201701
  2. ATORVASTATIN [Concomitant]
     Active Substance: ATORVASTATIN

REACTIONS (11)
  - Ventricular hypokinesia [Unknown]
  - Chest discomfort [Unknown]
  - Cardiac failure acute [Unknown]
  - Myocardial ischaemia [Unknown]
  - Dyspnoea [Unknown]
  - Hypertension [Unknown]
  - Dyspnoea paroxysmal nocturnal [Unknown]
  - Renal impairment [Unknown]
  - Cardiac valve disease [Unknown]
  - Orthopnoea [Unknown]
  - Nephropathy [Unknown]

NARRATIVE: CASE EVENT DATE: 201702
